FAERS Safety Report 13956754 (Version 1)
Quarter: 2017Q3

REPORT INFORMATION
  Report Type: Spontaneous
  Country: FI (occurrence: FI)
  Receive Date: 20170912
  Receipt Date: 20170912
  Transmission Date: 20171128
  Serious: Yes (Disabling, Other)
  Sender: FDA-Public Use
  Company Number: FI-AMGEN-FINSP2017130334

PATIENT
  Age: 76 Year
  Sex: Female
  Weight: 70 kg

DRUGS (16)
  1. CALCICHEW D3 FORTE [Concomitant]
     Active Substance: CALCIUM\CHOLECALCIFEROL
     Dosage: UNK
  2. DEXAMETHASONE. [Concomitant]
     Active Substance: DEXAMETHASONE
     Indication: PLASMA CELL MYELOMA
     Dosage: UNK
     Dates: start: 20170518
  3. FURESIS [Concomitant]
     Active Substance: FUROSEMIDE
     Dosage: 20 MG, UNK (1/2 X 1)
  4. VAGIFEM [Concomitant]
     Active Substance: ESTRADIOL
     Dosage: 10 MUG, 2 TIMES/WK
  5. KALEORID [Concomitant]
     Active Substance: POTASSIUM CHLORIDE
     Dosage: 1 G, UNK (1X3)
  6. BISOPROLOL ORION [Concomitant]
     Active Substance: BISOPROLOL
     Dosage: 2.5 MG, UNK (1X1)
  7. AQUALAN [Concomitant]
     Dosage: UNK (1X2)
  8. CARDACE [Concomitant]
     Active Substance: RAMIPRIL
     Dosage: 5 MG, UNK (PAUSED)
  9. KYPROLIS [Suspect]
     Active Substance: CARFILZOMIB
     Indication: PLASMA CELL MYELOMA
     Dosage: 100 MG, ON DAYS 1, 2, 8, 9, 15  AND 16, 28 DAYS CYCLE
     Route: 042
     Dates: start: 20170518, end: 20170726
  10. COTRIM FORTE [Concomitant]
     Active Substance: SULFAMETHOXAZOLE\TRIMETHOPRIM
     Dosage: 160/800 MG, 3 TIMES/WK
  11. LEMON. [Concomitant]
     Active Substance: LEMON
     Dosage: UNK (500 MG/10 MICRO G 1X2)
  12. ACLOVIR [Concomitant]
     Dosage: 400 MG, UNK (1X1)
  13. TARGINIQ ER [Concomitant]
     Active Substance: NALOXONE HYDROCHLORIDE\OXYCODONE HYDROCHLORIDE
     Dosage: 20/10 MG 1X2
  14. PANADOL FORTE [Concomitant]
     Active Substance: ACETAMINOPHEN\CAFFEINE
     Dosage: 1 G, UNK (1X1-3)
  15. MIRTAZAPIN ORION [Concomitant]
     Active Substance: MIRTAZAPINE
     Dosage: 30 MG, UNK (1X1)
  16. LIMBITROL [Concomitant]
     Active Substance: AMITRIPTYLINE\CHLORDIAZEPOXIDE
     Dosage: 12.5/5 MG 1X1

REACTIONS (4)
  - Sinus tachycardia [Unknown]
  - Pulmonary fibrosis [Not Recovered/Not Resolved]
  - Cardiac failure [Unknown]
  - Pulmonary hypertension [Not Recovered/Not Resolved]

NARRATIVE: CASE EVENT DATE: 2017
